FAERS Safety Report 4920917-9 (Version None)
Quarter: 2006Q1

REPORT INFORMATION
  Report Type: 
  Country: None (occurrence: None)
  Receive Date: 20060223
  Receipt Date: 20051019
  Transmission Date: 20060701
  Serious: Yes (Hospitalization)
  Sender: FDA-Public Use
  Company Number: US-MERCK-0510USA08347

PATIENT
  Age: 47 Year
  Sex: Male
  Weight: 109 kg

DRUGS (3)
  1. VIOXX [Suspect]
     Indication: ARTHRITIS
     Route: 048
     Dates: start: 20001201, end: 20021201
  2. LORCET-HD [Concomitant]
     Indication: ARTHRITIS
     Route: 065
     Dates: start: 20010301, end: 20030201
  3. LORTAB [Concomitant]
     Indication: ARTHRITIS
     Route: 065
     Dates: start: 20010801, end: 20030201

REACTIONS (5)
  - ANXIETY DISORDER [None]
  - BLOOD TRIGLYCERIDES INCREASED [None]
  - CORONARY ARTERY DISEASE [None]
  - DIABETES MELLITUS [None]
  - MYOCARDIAL INFARCTION [None]
